FAERS Safety Report 7626701-X (Version None)
Quarter: 2011Q3

REPORT INFORMATION
  Report Type: 
  Country: None (occurrence: None)
  Receive Date: 20110721
  Receipt Date: 20110628
  Transmission Date: 20111222
  Serious: No
  Sender: FDA-Public Use
  Company Number: US-NOVEN-11US002674

PATIENT
  Age: 61 Year
  Sex: Female

DRUGS (2)
  1. FENTANYL [Suspect]
     Dosage: UNK
     Dates: start: 19940101, end: 20110601
  2. FENTANYL [Suspect]
     Indication: PAIN
     Dosage: 75 UG, Q72H
     Route: 062
     Dates: start: 20110610

REACTIONS (13)
  - LOCALISED INFECTION [None]
  - SKIN ULCER [None]
  - APPLICATION SITE PAIN [None]
  - APPLICATION SITE RASH [None]
  - PRODUCT QUALITY ISSUE [None]
  - INADEQUATE ANALGESIA [None]
  - ACARODERMATITIS [None]
  - PRURITUS [None]
  - MICTURITION FREQUENCY DECREASED [None]
  - APPLICATION SITE ERYTHEMA [None]
  - LOCALISED OEDEMA [None]
  - OEDEMA PERIPHERAL [None]
  - BURNING SENSATION [None]
